FAERS Safety Report 4311957-1 (Version None)
Quarter: 2004Q1

REPORT INFORMATION
  Report Type: 
  Country: None (occurrence: None)
  Receive Date: 20040303
  Receipt Date: 20040218
  Transmission Date: 20041129
  Serious: Yes (Disabling)
  Sender: FDA-Public Use
  Company Number: 2004CG00343

PATIENT
  Age: 45 Year
  Sex: Female
  Weight: 56 kg

DRUGS (5)
  1. NOLVADEX [Suspect]
     Indication: BREAST CANCER
     Dosage: 20 MG DAILY PO
     Route: 048
     Dates: start: 20030101, end: 20040105
  2. TENORDATE [Concomitant]
  3. SERESTA [Concomitant]
  4. TIAPRIDAL [Concomitant]
  5. SEROPRAM [Concomitant]

REACTIONS (4)
  - ARTERIAL OCCLUSIVE DISEASE [None]
  - ARTERIAL STENOSIS [None]
  - ERYTHROCYANOSIS [None]
  - PERIPHERAL ISCHAEMIA [None]
